FAERS Safety Report 12927561 (Version 1)
Quarter: 2016Q4

REPORT INFORMATION
  Report Type: Spontaneous
  Country: US (occurrence: US)
  Receive Date: 20161109
  Receipt Date: 20161109
  Transmission Date: 20170207
  Serious: No
  Sender: FDA-Public Use
  Company Number: None

PATIENT
  Age: 35 Year
  Sex: Female
  Weight: 63 kg

DRUGS (10)
  1. OXYCODONE/APAP 5/325MG [Suspect]
     Active Substance: ACETAMINOPHEN\OXYCODONE HYDROCHLORIDE
     Indication: PAIN
     Dosage: QUANTITY:1 TABLET(S); EVERY 6 HOURS; ORAL?
     Route: 048
     Dates: start: 20161006
  2. VITAMIN B12 [Concomitant]
     Active Substance: CYANOCOBALAMIN
  3. BALSALAZIDE [Concomitant]
     Active Substance: BALSALAZIDE
  4. AZATHIOPRINE. [Concomitant]
     Active Substance: AZATHIOPRINE
  5. SYNTHROID [Concomitant]
     Active Substance: LEVOTHYROXINE SODIUM
  6. IRON [Concomitant]
     Active Substance: IRON
  7. TURMERIC [Concomitant]
     Active Substance: TURMERIC
  8. XARELTO [Concomitant]
     Active Substance: RIVAROXABAN
  9. LORAZEPAM. [Concomitant]
     Active Substance: LORAZEPAM
  10. VITAMIN D [Concomitant]
     Active Substance: CHOLECALCIFEROL

REACTIONS (6)
  - Drug effect decreased [None]
  - Vomiting [None]
  - Headache [None]
  - Fatigue [None]
  - Product substitution issue [None]
  - Nausea [None]

NARRATIVE: CASE EVENT DATE: 20161006
